FAERS Safety Report 16456613 (Version 1)
Quarter: 2019Q2

REPORT INFORMATION
  Report Type: Report from Study
  Country: CN (occurrence: CN)
  Receive Date: 20190620
  Receipt Date: 20190620
  Transmission Date: 20190711
  Serious: Yes (Hospitalization)
  Sender: FDA-Public Use
  Company Number: CN-UCBSA-2019024408

PATIENT
  Age: 33 Year
  Sex: Male
  Weight: 71 kg

DRUGS (3)
  1. OXCARBAZEPINE. [Concomitant]
     Active Substance: OXCARBAZEPINE
     Indication: EPILEPSY
     Dosage: 0.6 GRAM, 2X/DAY (BID)
     Route: 048
     Dates: start: 201404
  2. MAGNESIUM VALPROATE [Concomitant]
     Active Substance: VALPROATE MAGNESIUM
     Indication: EPILEPSY
     Dosage: 0.5 GRAM, 2X/DAY (BID)
     Route: 048
     Dates: start: 201203
  3. LACOSAMIDE. [Suspect]
     Active Substance: LACOSAMIDE
     Indication: PARTIAL SEIZURES
     Dosage: 100 MILLIGRAM, 2X/DAY (BID)
     Route: 048
     Dates: start: 20131218, end: 2019

REACTIONS (1)
  - Brain operation [Not Recovered/Not Resolved]

NARRATIVE: CASE EVENT DATE: 20190517
